FAERS Safety Report 9714725 (Version 1)
Quarter: 2013Q4

REPORT INFORMATION
  Report Type: Spontaneous
  Country: DE (occurrence: DE)
  Receive Date: 20131126
  Receipt Date: 20131126
  Transmission Date: 20140711
  Serious: Yes (Congenital Anomaly)
  Sender: FDA-Public Use
  Company Number: DE-MYLANLABS-2013S1025899

PATIENT
  Sex: Male
  Weight: 3.25 kg

DRUGS (7)
  1. AZATHIOPRINE [Suspect]
     Dosage: 100 [MG/D ]
     Route: 064
     Dates: start: 20120615, end: 20130319
  2. ADALIMUMAB [Suspect]
     Dosage: 40 [MG/WK ]
     Route: 064
     Dates: start: 20120615, end: 20121017
  3. FOLIO FORTE [Concomitant]
     Indication: PROPHYLAXIS OF NEURAL TUBE DEFECT
     Route: 064
     Dates: start: 20120615, end: 20130319
  4. UDC [Concomitant]
     Indication: CHOLELITHIASIS
     Dosage: 250 [MG/D ]
     Route: 064
     Dates: start: 20120615
  5. VITAMIN B12 [Concomitant]
     Indication: SELF-MEDICATION
     Route: 064
     Dates: start: 20120615, end: 20130319
  6. OMEGA-3 [Concomitant]
     Indication: SELF-MEDICATION
     Route: 064
     Dates: start: 20120615, end: 20130319
  7. INFLUSPLIT SSW [Concomitant]
     Indication: IMMUNISATION
     Route: 064
     Dates: start: 20130116, end: 20130116

REACTIONS (2)
  - Syndactyly [Not Recovered/Not Resolved]
  - Exposure during pregnancy [Unknown]
